FAERS Safety Report 16617649 (Version 1)
Quarter: 2019Q3

REPORT INFORMATION
  Report Type: Spontaneous
  Country: FR (occurrence: FR)
  Receive Date: 20190723
  Receipt Date: 20190723
  Transmission Date: 20191004
  Serious: Yes (Other)
  Sender: FDA-Public Use
  Company Number: FR-PFIZER INC-2019304088

PATIENT
  Age: 65 Year
  Sex: Female
  Weight: 76 kg

DRUGS (7)
  1. IMETH [Suspect]
     Active Substance: METHOTREXATE SODIUM
     Indication: SPONDYLITIS
     Dosage: 10 MG, WEEKLY
     Route: 048
     Dates: start: 20171106
  2. SALAZOPYRINE [Concomitant]
     Active Substance: SULFASALAZINE
     Dosage: 1000 MG, ALTERNATE DAY (EVERY 2 DAYS)
     Route: 048
     Dates: start: 20130101, end: 20171106
  3. PRAVASTATINE [PRAVASTATIN SODIUM] [Concomitant]
     Dosage: 40 MG, 1X/DAY
     Route: 048
  4. REMSIMA [Suspect]
     Active Substance: INFLIXIMAB
     Indication: SPONDYLITIS
     Dosage: 5 MG/KG, (EVERY 6 WEEKS)
     Route: 042
     Dates: start: 20160503, end: 20181217
  5. SPECIAFOLDINE [Concomitant]
     Active Substance: FOLIC ACID
     Dosage: 1 DF WEEKLY
     Route: 048
     Dates: start: 20171106
  6. ESOMEPRAZOLE. [Concomitant]
     Active Substance: ESOMEPRAZOLE MAGNESIUM
     Dosage: 20 MG, 1X/DAY
     Route: 048
     Dates: start: 20181001
  7. HUMIRA [Suspect]
     Active Substance: ADALIMUMAB
     Indication: SPONDYLITIS
     Dosage: UNK
     Route: 048
     Dates: start: 201307, end: 201605

REACTIONS (1)
  - Breast cancer [Not Recovered/Not Resolved]

NARRATIVE: CASE EVENT DATE: 20181228
